FAERS Safety Report 7938741-1 (Version None)
Quarter: 2011Q4

REPORT INFORMATION
  Report Type: 
  Country: None (occurrence: None)
  Receive Date: 20111124
  Receipt Date: 20111117
  Transmission Date: 20120403
  Serious: No
  Sender: FDA-Public Use
  Company Number: US-BIOGENIDEC-2011BI031822

PATIENT
  Sex: Male

DRUGS (5)
  1. AMANTADINE HCL [Concomitant]
  2. AVONEX [Concomitant]
     Route: 030
  3. TYSABRI [Suspect]
     Route: 042
  4. AVONEX [Concomitant]
     Indication: MULTIPLE SCLEROSIS
     Route: 030
  5. TYSABRI [Suspect]
     Indication: MULTIPLE SCLEROSIS
     Route: 042
     Dates: start: 20070918

REACTIONS (2)
  - VASCULITIS [None]
  - LIVEDO RETICULARIS [None]
